FAERS Safety Report 15844212 (Version 1)
Quarter: 2019Q1

REPORT INFORMATION
  Report Type: Spontaneous
  Country: CA (occurrence: CA)
  Receive Date: 20190118
  Receipt Date: 20190118
  Transmission Date: 20190417
  Serious: Yes (Hospitalization, Other)
  Sender: FDA-Public Use
  Company Number: CA-009507513-1901CAN004600

PATIENT

DRUGS (2)
  1. ZEMURON [Suspect]
     Active Substance: ROCURONIUM BROMIDE
     Dosage: 100 MILLIGRAM
     Route: 042
     Dates: start: 201901
  2. BRIDION [Suspect]
     Active Substance: SUGAMMADEX
     Dosage: UNK
     Dates: start: 201901

REACTIONS (2)
  - Hospitalisation [Unknown]
  - Injection site extravasation [Unknown]

NARRATIVE: CASE EVENT DATE: 201901
